FAERS Safety Report 18307781 (Version 1)
Quarter: 2020Q3

REPORT INFORMATION
  Report Type: Spontaneous
  Country: US (occurrence: US)
  Receive Date: 20200924
  Receipt Date: 20200924
  Transmission Date: 20201103
  Serious: No
  Sender: FDA-Public Use
  Company Number: US-USP-000094

PATIENT

DRUGS (1)
  1. NITRO?DUR [Suspect]
     Active Substance: NITROGLYCERIN
     Indication: PRODUCT USED FOR UNKNOWN INDICATION
     Dosage: NDC: 43598089430?30 UNIT DOSES IN BOX
     Route: 062

REACTIONS (1)
  - Dermatitis allergic [Unknown]
